FAERS Safety Report 6277821-6 (Version None)
Quarter: 2009Q3

REPORT INFORMATION
  Report Type: 
  Country: None (occurrence: None)
  Receive Date: 20090720
  Receipt Date: 20090707
  Transmission Date: 20100115
  Serious: Yes (Life-Threatening)
  Sender: FDA-Public Use
  Company Number: 2009AL004539

PATIENT
  Age: 86 Year
  Sex: Female

DRUGS (12)
  1. DICLOFENAC SODIUM [Suspect]
     Indication: PAIN
     Dosage: 50 MG; PO
     Route: 048
     Dates: start: 20090616
  2. SENNA [Concomitant]
  3. NITRAZEPAM [Concomitant]
  4. SERTRALINE [Concomitant]
  5. OMEPRAZOLE [Concomitant]
  6. PHOSPHATE ION [Concomitant]
  7. CLENIL MODULITE [Concomitant]
  8. ACETAMINOPHEN [Concomitant]
  9. LACTULOSE [Concomitant]
  10. NULYTELY [Concomitant]
  11. CODEINE SUL TAB [Concomitant]
  12. CYCLIZINE [Concomitant]

REACTIONS (2)
  - ANAPHYLACTIC REACTION [None]
  - HYPOTENSION [None]
